FAERS Safety Report 14560415 (Version 1)
Quarter: 2018Q1

REPORT INFORMATION
  Report Type: Spontaneous
  Country: PL (occurrence: PL)
  Receive Date: 20180222
  Receipt Date: 20180222
  Transmission Date: 20180509
  Serious: Yes (Other)
  Sender: FDA-Public Use
  Company Number: PL-UCBSA-2018006445

PATIENT
  Age: 28 Year
  Sex: Male

DRUGS (6)
  1. OXCARBAZEPINE. [Suspect]
     Active Substance: OXCARBAZEPINE
     Dosage: 900 MG, ONCE DAILY (QD)
     Dates: start: 2005
  2. OXCARBAZEPINE. [Suspect]
     Active Substance: OXCARBAZEPINE
     Dosage: 900 MG, ONCE DAILY (QD)
     Dates: start: 200808
  3. LEVETIRACETAM. [Suspect]
     Active Substance: LEVETIRACETAM
     Indication: GENERALISED TONIC-CLONIC SEIZURE
     Dosage: 1500 MG, ONCE DAILY (QD)
     Dates: start: 200805
  4. CARBAMAZEPINE. [Suspect]
     Active Substance: CARBAMAZEPINE
     Indication: AUTOMATISM EPILEPTIC
     Dosage: UNKNOWN DOSE
  5. CARBAMAZEPINE. [Suspect]
     Active Substance: CARBAMAZEPINE
     Indication: EPILEPSY
     Dosage: 600 MG, ONCE DAILY (QD)
  6. OXCARBAZEPINE. [Suspect]
     Active Substance: OXCARBAZEPINE
     Indication: AUTOMATISM EPILEPTIC
     Dosage: 1650 MG, ONCE DAILY (QD)

REACTIONS (4)
  - Generalised tonic-clonic seizure [Unknown]
  - Drug effect incomplete [Unknown]
  - Epilepsy [Unknown]
  - Neurotoxicity [Unknown]

NARRATIVE: CASE EVENT DATE: 200805
